FAERS Safety Report 7058808-2 (Version None)
Quarter: 2010Q4

REPORT INFORMATION
  Report Type: 
  Country: None (occurrence: None)
  Receive Date: 20101022
  Receipt Date: 20101013
  Transmission Date: 20110411
  Serious: Yes (Other)
  Sender: FDA-Public Use
  Company Number: JP-ABBOTT-10P-087-0680274-00

PATIENT
  Age: 77 Year
  Sex: Male

DRUGS (5)
  1. LEUPROLIDE ACETATE [Suspect]
     Indication: PROSTATE CANCER STAGE III
     Route: 058
     Dates: start: 20060510, end: 20070413
  2. BICALUTAMIDE [Concomitant]
     Indication: PROSTATE CANCER STAGE III
     Route: 048
     Dates: start: 20060510, end: 20070410
  3. NAIXAN [Concomitant]
     Indication: TUMOUR ASSOCIATED FEVER
     Route: 048
     Dates: start: 20061120
  4. UPT [Concomitant]
     Indication: RECTAL CANCER RECURRENT
     Route: 048
     Dates: start: 20061120, end: 20070114
  5. UPT [Concomitant]
     Route: 048
     Dates: start: 20070115, end: 20070226

REACTIONS (1)
  - RECTAL CANCER RECURRENT [None]
